FAERS Safety Report 11692982 (Version 4)
Quarter: 2015Q4

REPORT INFORMATION
  Report Type: Spontaneous
  Country: GB (occurrence: GB)
  Receive Date: 20151103
  Receipt Date: 20151223
  Transmission Date: 20160304
  Serious: Yes (Disabling, Other)
  Sender: FDA-Public Use
  Company Number: GB-JNJFOC-20151018317

PATIENT
  Age: 42 Year
  Sex: Male
  Weight: 94 kg

DRUGS (5)
  1. CETIRIZINE HYDROCHLORIDE. [Suspect]
     Active Substance: CETIRIZINE HYDROCHLORIDE
     Indication: PRODUCT USED FOR UNKNOWN INDICATION
     Dosage: DOSE: 20 ^DOSE^ (UNITS UNSPECIFIED)
     Route: 048
     Dates: start: 20140327, end: 20140403
  2. LANSOPRAZOLE. [Concomitant]
     Active Substance: LANSOPRAZOLE
     Indication: GASTROOESOPHAGEAL REFLUX DISEASE
     Route: 048
     Dates: start: 20071026
  3. INTAL [Concomitant]
     Active Substance: CROMOLYN SODIUM
     Indication: PRODUCT USED FOR UNKNOWN INDICATION
     Dosage: OCCULAR USE
     Route: 047
     Dates: start: 20090314
  4. BECLOMETASONE [Concomitant]
     Active Substance: BECLOMETHASONE DIPROPIONATE
     Indication: PRODUCT USED FOR UNKNOWN INDICATION
     Route: 045
     Dates: start: 20080627
  5. CETIRIZINE HYDROCHLORIDE. [Suspect]
     Active Substance: CETIRIZINE HYDROCHLORIDE
     Indication: PRODUCT USED FOR UNKNOWN INDICATION
     Route: 048
     Dates: start: 20140416, end: 20150825

REACTIONS (14)
  - Disturbance in attention [Unknown]
  - Syncope [Recovered/Resolved]
  - Overdose [Unknown]
  - Presyncope [Recovered/Resolved]
  - Heart rate increased [Recovered/Resolved]
  - Fatigue [Unknown]
  - Fall [None]
  - Loss of consciousness [None]
  - Sinus node dysfunction [Recovered/Resolved]
  - Bradycardia [Unknown]
  - Malaise [Unknown]
  - Head injury [None]
  - Off label use [Unknown]
  - Disorientation [None]

NARRATIVE: CASE EVENT DATE: 20140327
